FAERS Safety Report 9939380 (Version 1)
Quarter: 2014Q1

REPORT INFORMATION
  Report Type: Report from Study
  Country: US (occurrence: US)
  Receive Date: 20140303
  Receipt Date: 20140303
  Transmission Date: 20141002
  Serious: No
  Sender: FDA-Public Use
  Company Number: US-ABBVIE-13P-163-1038146-00

PATIENT
  Age: 50 Year
  Sex: Female

DRUGS (8)
  1. HUMIRA [Suspect]
     Indication: ANKYLOSING SPONDYLITIS
     Dates: start: 20121125
  2. LAMICTAL [Concomitant]
     Indication: BIPOLAR DISORDER
     Dosage: AT BEDTIME
  3. DEPAKOTE [Concomitant]
     Indication: BIPOLAR DISORDER
     Dosage: AT BEDTIME
  4. ABILIFY [Concomitant]
     Indication: BIPOLAR DISORDER
     Dosage: AT BEDTIME
  5. BYSTOLIC [Concomitant]
     Indication: HYPERTENSION
     Dosage: IN THE MORNING
  6. CLONIDINE [Concomitant]
     Indication: HYPERTENSION
     Dosage: IN THE MORNING
  7. TOPAMAX [Concomitant]
     Indication: CARPAL TUNNEL SYNDROME
     Dosage: 2-3 TIMES DAILY
  8. HYDROCODONE [Concomitant]
     Indication: PAIN
     Dosage: 5/500 1 TAB EVERY 4-6 HOURS AS NEEDED

REACTIONS (5)
  - Hyperventilation [Not Recovered/Not Resolved]
  - Panic attack [Not Recovered/Not Resolved]
  - Abdominal discomfort [Not Recovered/Not Resolved]
  - Irritable bowel syndrome [Not Recovered/Not Resolved]
  - Injection site urticaria [Recovered/Resolved]
